FAERS Safety Report 21805641 (Version 1)
Quarter: 2023Q1

REPORT INFORMATION
  Report Type: Spontaneous
  Country: DE (occurrence: DE)
  Receive Date: 20230102
  Receipt Date: 20230102
  Transmission Date: 20230418
  Serious: Yes (Other)
  Sender: FDA-Public Use
  Company Number: DE-EMBRYOTOX-202119415

PATIENT
  Age: 1 Day
  Sex: Female
  Weight: 3.27 kg

DRUGS (3)
  1. LAMOTRIGINE [Suspect]
     Active Substance: LAMOTRIGINE
     Indication: Foetal exposure during pregnancy
     Dosage: UNK (MATERNAL DOSE: 500 MG QD (300-0-200MG DAILY) FROM 15 FEB 2021 TO 19 NOV 2021)
     Route: 064
  2. CLOBAZAM [Suspect]
     Active Substance: CLOBAZAM
     Indication: Foetal exposure during pregnancy
     Dosage: UNK (MATERNAL DOSE: FROM 15 FEB 2021 TO 19 NOV 2021 AT A DOSE OF 5 MG QD)
     Route: 064
  3. LEVOTHYROXINE SODIUM [Concomitant]
     Active Substance: LEVOTHYROXINE SODIUM
     Indication: Foetal exposure during pregnancy
     Dosage: UNK (MATERNAL DOSE: FROM 15 FEB 2021 TO 19 NOV 2021 AT AN UNKNOWN DOSE)
     Route: 064

REACTIONS (2)
  - Oxygen saturation decreased [Recovering/Resolving]
  - Foetal exposure during pregnancy [Unknown]

NARRATIVE: CASE EVENT DATE: 20211101
